FAERS Safety Report 17589873 (Version 1)
Quarter: 2020Q1

REPORT INFORMATION
  Report Type: Spontaneous
  Country: AU (occurrence: AU)
  Receive Date: 20200327
  Receipt Date: 20200327
  Transmission Date: 20200409
  Serious: Yes (Life-Threatening)
  Sender: FDA-Public Use
  Company Number: AU-TEVA-2020-AU-1213784

PATIENT
  Age: 23 Month
  Sex: Male
  Weight: 12 kg

DRUGS (12)
  1. DEXMEDETOMIDINE. [Suspect]
     Active Substance: DEXMEDETOMIDINE
     Dosage: DOSE: 0.1 MCG/KG/MIN
     Route: 041
  2. PROPOFOL. [Concomitant]
     Active Substance: PROPOFOL
     Indication: ANAESTHESIA
     Route: 065
  3. EPINEPHRINE. [Suspect]
     Active Substance: EPINEPHRINE
     Indication: HYPOTENSION
  4. ISOFLURANE. [Concomitant]
     Active Substance: ISOFLURANE
     Indication: ANAESTHESIA
     Route: 065
  5. DEXMEDETOMIDINE. [Suspect]
     Active Substance: DEXMEDETOMIDINE
     Indication: ANAESTHESIA
     Dosage: DOSE: 0.2 MCG/KG/MIN
     Route: 041
  6. REMIFENTANIL [Concomitant]
     Active Substance: REMIFENTANIL
     Indication: INDUCTION OF ANAESTHESIA
     Route: 065
  7. REMIFENTANIL [Concomitant]
     Active Substance: REMIFENTANIL
     Indication: MAINTENANCE OF ANAESTHESIA
     Dosage: DOSE: 0.2 MCG/KG/MIN
     Route: 065
  8. DEXAMETHASONE. [Concomitant]
     Active Substance: DEXAMETHASONE
     Indication: INDUCTION OF ANAESTHESIA
     Route: 065
  9. DEXMEDETOMIDINE. [Suspect]
     Active Substance: DEXMEDETOMIDINE
     Indication: PREMEDICATION
     Route: 045
  10. ATRACURIUM [Concomitant]
     Active Substance: ATRACURIUM
     Indication: INDUCTION OF ANAESTHESIA
     Route: 065
  11. SEVOFLURANE. [Concomitant]
     Active Substance: SEVOFLURANE
     Indication: INDUCTION OF ANAESTHESIA
     Route: 065
  12. EPINEPHRINE. [Suspect]
     Active Substance: EPINEPHRINE
     Indication: BRADYCARDIA
     Dosage: DOSE: 0.05 MCG/KG/MIN
     Route: 065

REACTIONS (6)
  - Hypotension [Recovered/Resolved]
  - Hypertension [Recovered/Resolved]
  - Accidental overdose [Unknown]
  - Bradycardia [Recovered/Resolved]
  - Drug ineffective [Unknown]
  - Incorrect drug administration rate [Unknown]
